FAERS Safety Report 9527995 (Version 1)
Quarter: 2013Q1

REPORT INFORMATION
  Report Type: Spontaneous
  Country: US (occurrence: None)
  Receive Date: 20130314
  Receipt Date: 20130314
  Transmission Date: 20140127
  Serious: Yes (Other)
  Sender: FDA-Public Use
  Company Number: 1212USA000861

PATIENT
  Age: 44 Year
  Sex: Male

DRUGS (3)
  1. PEGINTRON [Suspect]
     Indication: HEPATITIS C
     Dosage: UNK, SUBCUTANEOUS
     Route: 058
     Dates: start: 20121031
  2. RIBAVIRIN (RIBAVIRIN) CAPSULE [Suspect]
     Indication: HEPATITIS C
     Dosage: UNK, ORAL
     Route: 048
     Dates: start: 20121031
  3. VICTRELIS (BOCEPREVIR) CAPSULE [Suspect]
     Indication: HEPATITIS C
     Dosage: UNK
     Dates: start: 20121128

REACTIONS (13)
  - Gastrointestinal disorder [None]
  - Dyspepsia [None]
  - Diarrhoea [None]
  - Pyrexia [None]
  - Pruritus [None]
  - Rash [None]
  - Insomnia [None]
  - Disturbance in attention [None]
  - Depression [None]
  - Headache [None]
  - Malaise [None]
  - Irritability [None]
  - Fatigue [None]
